FAERS Safety Report 22294441 (Version 1)
Quarter: 2023Q2

REPORT INFORMATION
  Report Type: Spontaneous
  Country: US (occurrence: US)
  Receive Date: 20230508
  Receipt Date: 20230508
  Transmission Date: 20230722
  Serious: No
  Sender: FDA-Public Use
  Company Number: US-ASTELLAS-2022US018519

PATIENT
  Age: 75 Year
  Sex: Female

DRUGS (4)
  1. LEXISCAN [Suspect]
     Active Substance: REGADENOSON
     Indication: Scan myocardial perfusion
     Dosage: 0.4MG/ 5ML IVP ONCE (15 SEC), OTHER
     Route: 042
     Dates: start: 20220519, end: 20220519
  2. LEXISCAN [Suspect]
     Active Substance: REGADENOSON
     Indication: Scan myocardial perfusion
     Dosage: 0.4MG/ 5ML IVP ONCE (15 SEC), OTHER
     Route: 042
     Dates: start: 20220519, end: 20220519
  3. LEXISCAN [Suspect]
     Active Substance: REGADENOSON
     Indication: Scan myocardial perfusion
     Dosage: 0.4MG/ 5ML IVP ONCE (15 SEC), OTHER
     Route: 042
     Dates: start: 20220519, end: 20220519
  4. LEXISCAN [Suspect]
     Active Substance: REGADENOSON
     Indication: Scan myocardial perfusion
     Dosage: 0.4MG/ 5ML IVP ONCE (15 SEC), OTHER
     Route: 042
     Dates: start: 20220519, end: 20220519

REACTIONS (2)
  - Psychogenic seizure [Unknown]
  - Incorrect product administration duration [Unknown]

NARRATIVE: CASE EVENT DATE: 20220519
